FAERS Safety Report 18221138 (Version 1)
Quarter: 2020Q3

REPORT INFORMATION
  Report Type: Spontaneous
  Country: US (occurrence: US)
  Receive Date: 20200831
  Receipt Date: 20200831
  Transmission Date: 20201103
  Serious: Yes (Hospitalization)
  Sender: FDA-Public Use
  Company Number: None

PATIENT
  Age: 34 Year
  Sex: Male
  Weight: 86 kg

DRUGS (1)
  1. IBUPROFEN (IBUPROFEN 600MG TAB) [Suspect]
     Active Substance: IBUPROFEN
     Route: 048
     Dates: start: 20191211, end: 20191211

REACTIONS (1)
  - Eye swelling [None]

NARRATIVE: CASE EVENT DATE: 20191211
